FAERS Safety Report 23146077 (Version 2)
Quarter: 2024Q1

REPORT INFORMATION
  Report Type: Report from Study
  Country: US (occurrence: US)
  Receive Date: 20231104
  Receipt Date: 20240122
  Transmission Date: 20240409
  Serious: No
  Sender: FDA-Public Use
  Company Number: US-002147023-NVSC2023US234900

PATIENT
  Sex: Male

DRUGS (2)
  1. LEQVIO [Suspect]
     Active Substance: INCLISIRAN SODIUM
     Indication: Blood cholesterol
     Dosage: UNK
     Route: 065
     Dates: start: 20230301
  2. LEQVIO [Suspect]
     Active Substance: INCLISIRAN SODIUM
     Indication: Lipoprotein (a)
     Dosage: UNK
     Route: 058
     Dates: start: 20230330

REACTIONS (5)
  - Blood cholesterol decreased [Recovering/Resolving]
  - Influenza like illness [Recovered/Resolved]
  - Nausea [Unknown]
  - Gastrointestinal disorder [Unknown]
  - Inflammation [Unknown]
